FAERS Safety Report 6125979-1 (Version None)
Quarter: 2009Q1

REPORT INFORMATION
  Report Type: 
  Country: None (occurrence: None)
  Receive Date: 20090320
  Receipt Date: 20090311
  Transmission Date: 20090719
  Serious: Yes (Hospitalization, Other)
  Sender: FDA-Public Use
  Company Number: CR-AMGEN-US334408

PATIENT
  Sex: Female
  Weight: 48 kg

DRUGS (5)
  1. ENBREL [Suspect]
     Indication: ANKYLOSING SPONDYLITIS
     Route: 058
     Dates: start: 20070304, end: 20080818
  2. FUROSEMIDE [Concomitant]
     Indication: HYPERTENSION
  3. OMEPRAZOLE [Concomitant]
     Indication: GASTRITIS
     Dosage: 20 MG DAILY FOR 2 YEARS
  4. PREDNISONE [Concomitant]
     Indication: INFLAMMATION
     Dosage: 5 MG - 7.5 MG DAILY FOR 15 YEARS
  5. INDOMETHACIN [Concomitant]
     Indication: INFLAMMATION
     Dosage: 100-150 MG DAILY FOR 15 YEARS

REACTIONS (3)
  - ATELECTASIS [None]
  - PLEURAL EFFUSION [None]
  - TUBERCULOSIS [None]
